FAERS Safety Report 24758604 (Version 1)
Quarter: 2024Q4

REPORT INFORMATION
  Report Type: Spontaneous
  Country: US (occurrence: None)
  Receive Date: 20241219
  Receipt Date: 20241219
  Transmission Date: 20250114
  Serious: No
  Sender: Public
  Company Number: None

PATIENT
  Age: 10 Year
  Sex: Male

DRUGS (1)
  1. HYRIMOZ [Suspect]
     Active Substance: ADALIMUMAB-ADAZ
     Dosage: OTHER QUANTITY : 20MG/0.2ML;?FREQUENCY : EVERY OTHER WEEK;?
     Route: 058
     Dates: start: 20240405

REACTIONS (2)
  - Seizure [None]
  - Symptom recurrence [None]

NARRATIVE: CASE EVENT DATE: 20241129
